FAERS Safety Report 25010710 (Version 1)
Quarter: 2025Q1

REPORT INFORMATION
  Report Type: Spontaneous
  Country: FR (occurrence: FR)
  Receive Date: 20250225
  Receipt Date: 20250225
  Transmission Date: 20250408
  Serious: Yes (Hospitalization)
  Sender: SANDOZ
  Company Number: None

PATIENT
  Age: 88 Year
  Sex: Male
  Weight: 86.7 kg

DRUGS (11)
  1. AMLODIPINE [Suspect]
     Active Substance: AMLODIPINE BESYLATE
     Indication: Hypertension
     Dosage: 5 MG, QD (5 MILLIGRAM IN 1 DAY)
     Route: 048
     Dates: start: 20240828
  2. AMLODIPINE\PERINDOPRIL [Suspect]
     Active Substance: AMLODIPINE\PERINDOPRIL
     Indication: Product used for unknown indication
     Dosage: 5 MG, QD (5 MILLIGRAM PO 1-0-0)
     Route: 048
  3. DUTASTERIDE [Suspect]
     Active Substance: DUTASTERIDE
     Indication: Benign prostatic hyperplasia
     Dosage: 0.5 MG, QD (0.5 MILLIGRAM IN 1 DAY, 1 CAPSULE IN THE MORNING)
     Route: 048
  4. DUTASTERIDE\TAMSULOSIN HYDROCHLORIDE [Suspect]
     Active Substance: DUTASTERIDE\TAMSULOSIN HYDROCHLORIDE
     Indication: Product used for unknown indication
     Dosage: 1 DF, QD (1 DOSAGE FORM IN 1 DAY. 0.5MG/0.4MG, PO 11 DOSAGE FORM PO 1 CAPSULE IN THE MORNING
     Route: 048
  5. PERINDOPRIL [Suspect]
     Active Substance: PERINDOPRIL
     Indication: Hypertension
     Dosage: 5 MG, QD (5 MILLIGRAM IN 1 DAY // 5 MILLIGRAM)
     Route: 048
     Dates: start: 20240828
  6. SOTALOL HYDROCHLORIDE [Suspect]
     Active Substance: SOTALOL HYDROCHLORIDE
     Indication: Atrial fibrillation
     Route: 048
  7. TAMSULOSIN [Suspect]
     Active Substance: TAMSULOSIN
     Indication: Benign prostatic hyperplasia
     Dosage: 0.4 MG, QD (0.4 MILLIGRAM IN 1 DAY, 1 CAPSULE IN THE MORNING)
     Route: 048
  8. HUMALOG [Concomitant]
     Active Substance: INSULIN LISPRO
     Indication: Product used for unknown indication
     Route: 058
  9. METFORMIN [Concomitant]
     Active Substance: METFORMIN HYDROCHLORIDE
     Indication: Product used for unknown indication
     Dosage: 1000 MG, BID (1000 MG 1-0-1)
     Route: 048
  10. RIVAROXABAN [Concomitant]
     Active Substance: RIVAROXABAN
     Indication: Product used for unknown indication
     Dosage: 20 MG, QD (20 MG IN 1 DAY , 0,0,1)
     Route: 048
  11. TOUJEO [Concomitant]
     Active Substance: INSULIN GLARGINE
     Indication: Product used for unknown indication
     Dosage: 15 IU, QD (15 IU (INTERNATIONAL UNIT) IN 1 DAY // 15 IU (INTERNATIONAL UNIT, IN THE EVENING)
     Route: 058

REACTIONS (4)
  - Gastric ulcer [Unknown]
  - Duodenal ulcer [Unknown]
  - Anaemia [Unknown]
  - Hypotension [Recovered/Resolved]

NARRATIVE: CASE EVENT DATE: 20240828
